FAERS Safety Report 8500008-0 (Version None)
Quarter: 2012Q3

REPORT INFORMATION
  Report Type: 
  Country: None (occurrence: None)
  Receive Date: 20120703
  Receipt Date: 20120703
  Transmission Date: 20120928
  Serious: Yes (Hospitalization)
  Sender: FDA-Public Use
  Company Number: None

PATIENT
  Sex: Female

DRUGS (1)
  1. EXJADE .500 MG QD PO NOVARTIS [Suspect]
     Indication: IRON OVERLOAD
     Dosage: 500 MG QD PO
     Route: 048
     Dates: start: 20110709, end: 20120602

REACTIONS (1)
  - RENAL FAILURE ACUTE [None]
